FAERS Safety Report 5424474-2 (Version None)
Quarter: 2007Q3

REPORT INFORMATION
  Report Type: 
  Country: None (occurrence: None)
  Receive Date: 20070822
  Receipt Date: 20070813
  Transmission Date: 20080115
  Serious: Yes (Hospitalization)
  Sender: FDA-Public Use
  Company Number: GXKR2007DE06940

PATIENT
  Age: 33 Year
  Sex: Female
  Weight: 72 kg

DRUGS (1)
  1. SERTRALIN HEXAL (NGX)(SERTRALINE) FILM-COATED TABLET [Suspect]
     Indication: BIPOLAR II DISORDER
     Dosage: 100 MG, QD, ORAL
     Route: 048
     Dates: start: 20070517, end: 20070810

REACTIONS (4)
  - DYSPHAGIA [None]
  - GASTRITIS EROSIVE [None]
  - ODYNOPHAGIA [None]
  - OESOPHAGITIS ULCERATIVE [None]
